FAERS Safety Report 9117450 (Version 4)
Quarter: 2013Q3

REPORT INFORMATION
  Report Type: Spontaneous
  Country: GB (occurrence: GB)
  Receive Date: 20130225
  Receipt Date: 20130719
  Transmission Date: 20140515
  Serious: Yes (Hospitalization)
  Sender: FDA-Public Use
  Company Number: GB-BIOGENIDEC-2013BI017538

PATIENT
  Age: 44 Year
  Sex: Female

DRUGS (15)
  1. TYSABRI [Suspect]
     Indication: MULTIPLE SCLEROSIS
     Route: 042
     Dates: start: 201105, end: 20130117
  2. PROPANOLOL [Concomitant]
  3. DICLOFENAC [Concomitant]
  4. AMITRIPTYLINE [Concomitant]
  5. GABAPENTIN [Concomitant]
  6. BUCCASTEM [Concomitant]
  7. FEXOFENADINE [Concomitant]
  8. VITAMIN B12 [Concomitant]
  9. HORMONIN [Concomitant]
     Route: 048
  10. PROPIVERINE [Concomitant]
  11. CITALOPRAM [Concomitant]
  12. LANSOPRAZOLE [Concomitant]
  13. EVENING PRIMROSE OIL [Concomitant]
  14. TARGINACT [Concomitant]
  15. TARGINACT [Concomitant]

REACTIONS (2)
  - Cerebrovascular accident [Not Recovered/Not Resolved]
  - Drug ineffective [Unknown]
